FAERS Safety Report 6029072-8 (Version None)
Quarter: 2008Q4

REPORT INFORMATION
  Report Type: 
  Country: None (occurrence: None)
  Receive Date: 20081231
  Receipt Date: 20081224
  Transmission Date: 20090506
  Serious: Yes (Hospitalization)
  Sender: FDA-Public Use
  Company Number: 1000001341

PATIENT
  Age: 83 Year
  Sex: Female
  Weight: 37 kg

DRUGS (8)
  1. MEMANTINE HCL [Suspect]
     Indication: DEMENTIA ALZHEIMER'S TYPE
     Dosage: 20 MG (20 MG, 1 IN 1 D), ORAL
     Route: 048
     Dates: start: 20070818, end: 20080905
  2. TIAPRIDE HYDROCHLORIDE [Concomitant]
  3. SODIUM RISEDRONATE HYDRATE [Concomitant]
  4. TIAPRIDE HYDROCHLORIDE [Concomitant]
  5. SODIUM RISEDRONATE HYDRATE [Concomitant]
  6. ALFACALCIDOL [Concomitant]
  7. EPINASTINE HYDROCHLORIDE [Concomitant]
  8. FELBINAC [Concomitant]

REACTIONS (5)
  - CATARACT [None]
  - INTRAOCULAR PRESSURE INCREASED [None]
  - LENS DISLOCATION [None]
  - VISUAL ACUITY REDUCED [None]
  - VITREOUS DISORDER [None]
